FAERS Safety Report 6402908-4 (Version None)
Quarter: 2009Q4

REPORT INFORMATION
  Report Type: 
  Country: None (occurrence: None)
  Receive Date: 20091014
  Receipt Date: 20091014
  Transmission Date: 20100525
  Serious: Yes (Hospitalization)
  Sender: FDA-Public Use
  Company Number: None

PATIENT
  Age: 42 Year
  Sex: Male
  Weight: 68.2 kg

DRUGS (4)
  1. EFFEXOR [Suspect]
     Indication: ANXIETY
     Dosage: 75 MG ONCE DAILY
     Dates: start: 20090801
  2. EFFEXOR [Suspect]
     Indication: DIVORCED
     Dosage: 75 MG ONCE DAILY
     Dates: start: 20090801
  3. EFFEXOR [Suspect]
     Indication: ANXIETY
     Dosage: 75 MG ONCE DAILY
     Dates: start: 20090901
  4. EFFEXOR [Suspect]
     Indication: DIVORCED
     Dosage: 75 MG ONCE DAILY
     Dates: start: 20090901

REACTIONS (13)
  - AGITATION [None]
  - ANXIETY [None]
  - CONFUSIONAL STATE [None]
  - DEPRESSION [None]
  - DEREALISATION [None]
  - DRUG DOSE OMISSION [None]
  - FEELING ABNORMAL [None]
  - FEELING OF DESPAIR [None]
  - JUDGEMENT IMPAIRED [None]
  - MENTAL IMPAIRMENT [None]
  - MOOD ALTERED [None]
  - MUSCLE TWITCHING [None]
  - PANIC ATTACK [None]
